FAERS Safety Report 4335850-3 (Version None)
Quarter: 2004Q2

REPORT INFORMATION
  Report Type: 
  Country: None (occurrence: None)
  Receive Date: 20040409
  Receipt Date: 20040331
  Transmission Date: 20050107
  Serious: Yes (Other)
  Sender: FDA-Public Use
  Company Number: PHEH2004US03673

PATIENT
  Age: 19 Year
  Sex: Male

DRUGS (1)
  1. EFLONE (NVO) [Suspect]
     Indication: CONJUNCTIVITIS
     Dosage: UNK GTT, UNK
     Dates: start: 20040323, end: 20040327

REACTIONS (5)
  - FACE OEDEMA [None]
  - OEDEMA PERIPHERAL [None]
  - RASH PRURITIC [None]
  - SYNCOPE [None]
  - URTICARIA [None]
